FAERS Safety Report 4808737-7 (Version None)
Quarter: 2005Q4

REPORT INFORMATION
  Report Type: 
  Country: None (occurrence: None)
  Receive Date: 20051021
  Receipt Date: 20040331
  Transmission Date: 20060501
  Serious: Yes (Life-Threatening, Hospitalization)
  Sender: FDA-Public Use
  Company Number: EWC040438755

PATIENT
  Age: 31 Year
  Sex: Male

DRUGS (1)
  1. ZYPREXA [Suspect]
     Indication: PSYCHOTIC DISORDER
     Dosage: 10 MG/1
     Dates: start: 20030929

REACTIONS (1)
  - PULMONARY EMBOLISM [None]
